FAERS Safety Report 4453037-0 (Version None)
Quarter: 2004Q3

REPORT INFORMATION
  Report Type: 
  Country: None (occurrence: None)
  Receive Date: 20040916
  Receipt Date: 20040916
  Transmission Date: 20050211
  Serious: Yes (Other)
  Sender: FDA-Public Use
  Company Number: None

PATIENT
  Sex: Male

DRUGS (2)
  1. IRINOTECAN [Suspect]
     Indication: CARCINOMA
     Dosage: 65 MG/M2 IV
     Route: 042
     Dates: start: 20040308, end: 20040308
  2. CISPLATIN [Suspect]
     Indication: CARCINOMA
     Dosage: 30 MG/M2 IV
     Route: 042
     Dates: start: 20040308, end: 20040308

REACTIONS (1)
  - MEDICATION ERROR [None]
